FAERS Safety Report 21246360 (Version 1)
Quarter: 2022Q3

REPORT INFORMATION
  Report Type: Spontaneous
  Country: US (occurrence: US)
  Receive Date: 20220824
  Receipt Date: 20220824
  Transmission Date: 20221027
  Serious: No
  Sender: FDA-Public Use
  Company Number: US-AUROBINDO-AUR-APL-2022-017244

PATIENT
  Sex: Female
  Weight: 63 kg

DRUGS (1)
  1. METHENAMINE HIPPURATE [Suspect]
     Active Substance: METHENAMINE HIPPURATE
     Indication: Urinary tract infection
     Dosage: UNK
     Route: 065

REACTIONS (5)
  - Product use complaint [Unknown]
  - Product taste abnormal [Unknown]
  - Product solubility abnormal [Unknown]
  - Product physical issue [Unknown]
  - Product quality issue [Unknown]
